FAERS Safety Report 6840139-4 (Version None)
Quarter: 2010Q3

REPORT INFORMATION
  Report Type: 
  Country: None (occurrence: None)
  Receive Date: 20100714
  Receipt Date: 20100708
  Transmission Date: 20110219
  Serious: Yes (Life-Threatening, Hospitalization, Other)
  Sender: FDA-Public Use
  Company Number: IN-BRISTOL-MYERS SQUIBB COMPANY-15161698

PATIENT
  Age: 25 Year
  Sex: Female

DRUGS (8)
  1. ABATACEPT [Suspect]
     Indication: SYSTEMIC LUPUS ERYTHEMATOSUS
     Route: 042
     Dates: start: 20090331
  2. CELLCEPT [Suspect]
     Indication: SYSTEMIC LUPUS ERYTHEMATOSUS
     Dates: start: 20090417, end: 20100706
  3. PREDNISOLONE [Suspect]
     Indication: SYSTEMIC LUPUS ERYTHEMATOSUS
     Dates: start: 20100525
  4. PANTOCID [Concomitant]
     Dates: start: 20100525
  5. PHENYTOIN [Concomitant]
     Dates: start: 20090529
  6. CALCIUM CARBONATE [Concomitant]
     Dates: start: 20090331
  7. HYDROXYCHLOROQUINE [Concomitant]
     Dates: start: 20090224
  8. ALENDRONIC ACID [Concomitant]
     Dates: start: 20090724

REACTIONS (3)
  - ANAEMIA [None]
  - LOWER RESPIRATORY TRACT INFECTION [None]
  - RENAL FAILURE [None]
